FAERS Safety Report 13558301 (Version 1)
Quarter: 2017Q2

REPORT INFORMATION
  Report Type: Spontaneous
  Country: US (occurrence: US)
  Receive Date: 20170518
  Receipt Date: 20170518
  Transmission Date: 20170830
  Serious: No
  Sender: FDA-Public Use
  Company Number: US-HORIZON-PEN-0225-2017

PATIENT
  Age: 63 Year
  Sex: Female

DRUGS (1)
  1. PENNSAID [Suspect]
     Active Substance: DICLOFENAC SODIUM
     Indication: ARTHRALGIA
     Dosage: 1-2 PUMPS BID
     Route: 061
     Dates: start: 201612

REACTIONS (5)
  - Application site rash [Unknown]
  - Application site erythema [Unknown]
  - Off label use [Unknown]
  - Application site dryness [Unknown]
  - Application site pain [Unknown]
